FAERS Safety Report 9787119 (Version 1)
Quarter: 2013Q4

REPORT INFORMATION
  Report Type: Spontaneous
  Country: US (occurrence: US)
  Receive Date: 20131228
  Receipt Date: 20131228
  Transmission Date: 20140711
  Serious: No
  Sender: FDA-Public Use
  Company Number: US-009507513-1312USA000956

PATIENT
  Sex: Male

DRUGS (2)
  1. PEGINTRON [Suspect]
     Indication: HEPATITIS C
     Dosage: REDIPEN;150 MICROGRAM/0.5ML SUBCUTANEOUSLY EVERY WEEK
     Route: 058
     Dates: start: 20131102
  2. RIBAPAK [Suspect]
     Dosage: 600 MG, BID
     Dates: start: 20131102

REACTIONS (1)
  - Nausea [Unknown]
